FAERS Safety Report 10276375 (Version 3)
Quarter: 2014Q4

REPORT INFORMATION
  Report Type: Spontaneous
  Country: US (occurrence: US)
  Receive Date: 20140703
  Receipt Date: 20141120
  Transmission Date: 20150528
  Serious: Yes (Hospitalization, Other)
  Sender: FDA-Public Use
  Company Number: US-BAYER-2014-100149

PATIENT
  Age: 26 Year
  Sex: Female

DRUGS (1)
  1. MIRENA [Suspect]
     Active Substance: LEVONORGESTREL
     Indication: CONTRACEPTION
     Dosage: 20 MCG/24HR, CONT
     Route: 015
     Dates: start: 201002, end: 20130621

REACTIONS (7)
  - Injury [None]
  - Device difficult to use [None]
  - Procedural pain [None]
  - Pain [None]
  - Device dislocation [None]
  - Device dislocation [None]
  - Device issue [None]

NARRATIVE: CASE EVENT DATE: 201108
